FAERS Safety Report 7787089-7 (Version None)
Quarter: 2011Q3

REPORT INFORMATION
  Report Type: 
  Country: None (occurrence: None)
  Receive Date: 20110929
  Receipt Date: 20110926
  Transmission Date: 20111222
  Serious: Yes (Life-Threatening, Hospitalization)
  Sender: FDA-Public Use
  Company Number: DE-CELGENEUS-062-21880-11092274

PATIENT
  Age: 60 Year
  Sex: Female

DRUGS (6)
  1. PIOGLITAZONE [Suspect]
     Indication: MULTIPLE MYELOMA
     Dosage: 60 MILLIGRAM
     Route: 048
     Dates: start: 20110208
  2. TREOSULFAN [Suspect]
     Indication: MULTIPLE MYELOMA
     Dosage: 250 MILLIGRAM
     Route: 048
     Dates: start: 20110208
  3. PANTOPRAZOLE [Concomitant]
     Indication: PROPHYLAXIS
     Dosage: 40 MILLIGRAM
     Route: 048
     Dates: start: 20110208
  4. DEXAMETHASONE [Suspect]
     Indication: MULTIPLE MYELOMA
     Dosage: 20 MG D1, 1MG D2-D8
     Route: 048
     Dates: start: 20110208
  5. REVLIMID [Suspect]
     Indication: MULTIPLE MYELOMA
     Dosage: 5 MILLIGRAM
     Route: 048
     Dates: start: 20110208
  6. ENOXAPARIN SODIUM [Concomitant]
     Indication: PROPHYLAXIS
     Dosage: 40 MILLIGRAM
     Route: 058
     Dates: start: 20110503

REACTIONS (1)
  - DEPRESSION SUICIDAL [None]
